FAERS Safety Report 6367691-X (Version None)
Quarter: 2009Q3

REPORT INFORMATION
  Report Type: 
  Country: None (occurrence: None)
  Receive Date: 20090921
  Receipt Date: 20090921
  Transmission Date: 20100115
  Serious: Yes (Hospitalization)
  Sender: FDA-Public Use
  Company Number: TR-ABBOTT-09P-161-0584173-00

PATIENT
  Sex: Female

DRUGS (2)
  1. DEPAKENE [Suspect]
     Indication: AFFECTIVE DISORDER
     Route: 048
  2. EFFEXOR [Concomitant]
     Indication: ANTIDEPRESSANT THERAPY
     Route: 048

REACTIONS (1)
  - ABORTION THREATENED [None]
